FAERS Safety Report 5123523-9 (Version None)
Quarter: 2006Q4

REPORT INFORMATION
  Report Type: 
  Country: None (occurrence: None)
  Receive Date: 20061010
  Receipt Date: 20060929
  Transmission Date: 20070319
  Serious: Yes (Hospitalization)
  Sender: FDA-Public Use
  Company Number: JP-JNJFOC-20041008373

PATIENT
  Sex: Female
  Weight: 43 kg

DRUGS (20)
  1. REMICADE [Suspect]
     Route: 042
  2. REMICADE [Suspect]
     Indication: RHEUMATOID ARTHRITIS
     Route: 042
  3. RHEUMATREX [Suspect]
     Route: 048
  4. RHEUMATREX [Suspect]
     Route: 048
  5. RHEUMATREX [Suspect]
     Indication: RHEUMATOID ARTHRITIS
     Route: 048
  6. PREDONIN [Concomitant]
     Indication: RHEUMATOID ARTHRITIS
     Route: 048
  7. AZULFIDINE [Concomitant]
     Indication: RHEUMATOID ARTHRITIS
     Route: 048
  8. LOXONIN [Concomitant]
     Indication: RHEUMATOID ARTHRITIS
     Route: 048
  9. OPALMON [Concomitant]
     Route: 048
  10. BENET [Concomitant]
     Route: 048
  11. NEUROTROPIN [Concomitant]
     Route: 048
  12. MAGLAX [Concomitant]
     Route: 048
  13. CEFAMIN [Concomitant]
     Route: 042
  14. MEROPIN [Concomitant]
     Route: 042
  15. DENOSINE [Concomitant]
     Route: 042
  16. PRODIF [Concomitant]
     Route: 042
  17. ALLEGRA [Concomitant]
     Route: 048
  18. CLARITHROMYCIN [Concomitant]
     Route: 048
  19. PL [Concomitant]
     Route: 048
  20. ADRENAL HORMONE PREPARATIONS [Concomitant]
     Indication: RHEUMATOID ARTHRITIS

REACTIONS (1)
  - PNEUMOCYSTIS JIROVECI PNEUMONIA [None]
